FAERS Safety Report 7312454-1 (Version None)
Quarter: 2011Q1

REPORT INFORMATION
  Report Type: 
  Country: None (occurrence: None)
  Receive Date: 20110224
  Receipt Date: 20110210
  Transmission Date: 20110831
  Serious: Yes (Other)
  Sender: FDA-Public Use
  Company Number: US-CELGENEUS-163-20785-11021797

PATIENT
  Age: 80 Year
  Sex: Female
  Weight: 49.94 kg

DRUGS (2)
  1. DEXAMETHASONE [Concomitant]
     Route: 065
  2. THALOMID [Suspect]
     Route: 048

REACTIONS (2)
  - ADVERSE DRUG REACTION [None]
  - NO THERAPEUTIC RESPONSE [None]
